FAERS Safety Report 24812505 (Version 2)
Quarter: 2025Q1

REPORT INFORMATION
  Report Type: Report from Study
  Country: US (occurrence: US)
  Receive Date: 20250106
  Receipt Date: 20250116
  Transmission Date: 20250408
  Serious: Yes (Hospitalization, Other)
  Sender: ABBVIE
  Company Number: US-ABBVIE-6070032

PATIENT
  Age: 60 Year
  Sex: Male

DRUGS (6)
  1. IMBRUVICA [Suspect]
     Active Substance: IBRUTINIB
     Indication: Chronic lymphocytic leukaemia
     Route: 048
  2. IMBRUVICA [Suspect]
     Active Substance: IBRUTINIB
     Indication: Chronic lymphocytic leukaemia
     Route: 048
     Dates: start: 20190501
  3. OMEPRAZOLE [Concomitant]
     Active Substance: OMEPRAZOLE
     Indication: Product used for unknown indication
  4. ATORVASTATIN [Concomitant]
     Active Substance: ATORVASTATIN
     Indication: Product used for unknown indication
  5. LEVOTHYROXINE [Concomitant]
     Active Substance: LEVOTHYROXINE
     Indication: Product used for unknown indication
  6. IMBRUVICA [Suspect]
     Active Substance: IBRUTINIB
     Indication: Chronic lymphocytic leukaemia
     Route: 048
     Dates: start: 2023

REACTIONS (23)
  - Thyroid neoplasm [Unknown]
  - Renal impairment [Recovered/Resolved]
  - Fatigue [Unknown]
  - Post herpetic neuralgia [Not Recovered/Not Resolved]
  - Calcinosis [Unknown]
  - White blood cell count decreased [Not Recovered/Not Resolved]
  - Herpes zoster [Unknown]
  - Diverticulitis [Not Recovered/Not Resolved]
  - Lymphocyte count decreased [Unknown]
  - Skin cancer [Unknown]
  - Lymphoma [Unknown]
  - Haemorrhage subcutaneous [Unknown]
  - Neoplasm malignant [Not Recovered/Not Resolved]
  - Large intestine polyp [Recovered/Resolved]
  - Neuralgia [Not Recovered/Not Resolved]
  - Haemorrhage subcutaneous [Recovered/Resolved]
  - Muscle spasms [Unknown]
  - Haemorrhage [Unknown]
  - Polyp [Unknown]
  - Thyroid neoplasm [Unknown]
  - Pain of skin [Unknown]
  - Skin burning sensation [Unknown]
  - Acquired oesophageal web [Unknown]

NARRATIVE: CASE EVENT DATE: 20200101
